FAERS Safety Report 5956315-9 (Version None)
Quarter: 2008Q4

REPORT INFORMATION
  Report Type: 
  Country: None (occurrence: None)
  Receive Date: 20081118
  Receipt Date: 20081106
  Transmission Date: 20090506
  Serious: Yes (Other)
  Sender: FDA-Public Use
  Company Number: PHHY2008GR27436

PATIENT
  Age: 68 Year
  Sex: Female

DRUGS (5)
  1. DIOVAN HCT [Suspect]
     Indication: HYPERTENSION
     Dosage: 1 TAB (80 MG VALSARTAN/12.5 MG HYDROCHLOROTHIAZIDE), QD
     Route: 048
     Dates: start: 20040401, end: 20081001
  2. EGICALM [Concomitant]
     Dosage: 1 DF, ONCE/SINGLE
     Route: 048
  3. GLUCOSAMINE SULFATE [Concomitant]
     Dosage: 1 DF, ONCE/SINGLE
     Route: 048
  4. DIERTINA [Concomitant]
     Dosage: 2 DF, ONCE/SINGLE
     Route: 048
  5. PRAZEPAM [Concomitant]
     Dosage: 10 MG, ONCE/SINGLE
     Route: 048

REACTIONS (1)
  - NORMOCHROMIC NORMOCYTIC ANAEMIA [None]
